FAERS Safety Report 8993524 (Version 1)
Quarter: 2013Q1

REPORT INFORMATION
  Report Type: Report from Study
  Country: IN (occurrence: IN)
  Receive Date: 20130102
  Receipt Date: 20130102
  Transmission Date: 20140127
  Serious: Yes (Death, Hospitalization)
  Sender: FDA-Public Use
  Company Number: IN-BRISTOL-MYERS SQUIBB COMPANY-15506512

PATIENT
  Age: 76 Year
  Sex: Male

DRUGS (3)
  1. DASATINIB [Suspect]
     Indication: PROSTATE CANCER
     Dosage: INTERRUPTED ON 23JAN2011
     Route: 048
     Dates: start: 20110113, end: 20110124
  2. DOCETAXEL [Suspect]
     Indication: PROSTATE CANCER
     Dosage: INTERRUPTED ON 23DEC2010
     Route: 042
     Dates: start: 20101223, end: 20101223
  3. PREDNISONE [Suspect]
     Indication: PROSTATE CANCER
     Dates: start: 20110113, end: 20110123

REACTIONS (7)
  - Septic shock [Fatal]
  - Acute respiratory distress syndrome [Fatal]
  - Renal failure acute [Fatal]
  - Asthenia [Not Recovered/Not Resolved]
  - Pneumonitis [Not Recovered/Not Resolved]
  - Pneumonia [Not Recovered/Not Resolved]
  - Hypoxia [Not Recovered/Not Resolved]
